FAERS Safety Report 21512465 (Version 1)
Quarter: 2022Q4

REPORT INFORMATION
  Report Type: Other
  Country: BR (occurrence: None)
  Receive Date: 20221027
  Receipt Date: 20221027
  Transmission Date: 20230113
  Serious: Yes (Hospitalization)
  Sender: FDA-Public Use
  Company Number: BR-ROCHE-3205522

PATIENT
  Age: 84 Year
  Sex: Male
  Weight: 86 kg

DRUGS (15)
  1. ACTEMRA [Suspect]
     Active Substance: TOCILIZUMAB
     Indication: Rheumatoid arthritis
     Route: 042
  2. PANTOPRAZOLE [Concomitant]
     Active Substance: PANTOPRAZOLE
     Indication: Systemic scleroderma
  3. DOMPERIDONE [Concomitant]
     Active Substance: DOMPERIDONE
  4. CARDIZEM [Concomitant]
     Active Substance: DILTIAZEM HYDROCHLORIDE
  5. DULOXETINE HYDROCHLORIDE [Concomitant]
     Active Substance: DULOXETINE HYDROCHLORIDE
  6. GLICLAZIDE [Concomitant]
     Active Substance: GLICLAZIDE
  7. ADDERALL [Concomitant]
     Active Substance: AMPHETAMINE ASPARTATE\AMPHETAMINE SULFATE\DEXTROAMPHETAMINE SACCHARATE\DEXTROAMPHETAMINE SULFATE
  8. CALTRATE [Concomitant]
     Active Substance: CALCIUM CARBONATE
  9. METICORTEN [Concomitant]
     Active Substance: PREDNISONE
  10. ZETIA [Concomitant]
     Active Substance: EZETIMIBE
  11. ROSUVASTATIN CALCIUM [Concomitant]
     Active Substance: ROSUVASTATIN CALCIUM
  12. DOXAZOSIN [Concomitant]
     Active Substance: DOXAZOSIN MESYLATE
  13. INDAPAMIDE [Concomitant]
     Active Substance: INDAPAMIDE
  14. MINERALS\VITAMINS [Concomitant]
     Active Substance: MINERALS\VITAMINS
     Indication: Eye disorder
  15. EPHYNAL [TOCOPHERYL ACETATE] [Concomitant]
     Indication: Skin disorder

REACTIONS (5)
  - Fall [Unknown]
  - Spinal fracture [Recovered/Resolved]
  - COVID-19 [Recovered/Resolved]
  - Lumbar vertebral fracture [Recovered/Resolved]
  - Gait disturbance [Recovered/Resolved]
